FAERS Safety Report 17585072 (Version 5)
Quarter: 2020Q2

REPORT INFORMATION
  Report Type: Report from Study
  Country: CA (occurrence: CA)
  Receive Date: 20200326
  Receipt Date: 20200602
  Transmission Date: 20200713
  Serious: Yes (Other)
  Sender: FDA-Public Use
  Company Number: CA-HLS-202000232

PATIENT
  Sex: Male

DRUGS (3)
  1. CLOZARIL [Suspect]
     Active Substance: CLOZAPINE
     Dosage: TITRATED UP SLOWLY TO 350MG OD. LAST INCREASE WAS IN FEB-2020. DOSE WAS DECREASED TO 300MG OD ON 20-
     Route: 048
     Dates: start: 20191007, end: 20200323
  2. ESTRACE [Concomitant]
     Active Substance: ESTRADIOL
     Route: 048
     Dates: start: 20180418
  3. SERTRALINE [Concomitant]
     Active Substance: SERTRALINE HYDROCHLORIDE
     Dosage: 1 1/2 OD
     Route: 048
     Dates: start: 20191101

REACTIONS (3)
  - Immunodeficiency [Unknown]
  - Neutropenia [Not Recovered/Not Resolved]
  - Leukopenia [Not Recovered/Not Resolved]
